FAERS Safety Report 13256571 (Version 1)
Quarter: 2017Q1

REPORT INFORMATION
  Report Type: Spontaneous
  Country: CH (occurrence: CH)
  Receive Date: 20170221
  Receipt Date: 20170221
  Transmission Date: 20170428
  Serious: Yes (Hospitalization)
  Sender: FDA-Public Use
  Company Number: CH-ASTRAZENECA-2017SE14742

PATIENT
  Age: 23089 Day
  Sex: Male
  Weight: 94 kg

DRUGS (3)
  1. LANTUS [Concomitant]
     Active Substance: INSULIN GLARGINE
     Indication: TYPE 2 DIABETES MELLITUS
     Dosage: 56
     Route: 058
     Dates: start: 2012
  2. FORXIGA [Suspect]
     Active Substance: DAPAGLIFLOZIN
     Indication: TYPE 2 DIABETES MELLITUS
     Route: 048
     Dates: start: 20150601, end: 20160814
  3. METFORMIN [Concomitant]
     Active Substance: METFORMIN HYDROCHLORIDE
     Indication: TYPE 2 DIABETES MELLITUS
     Dosage: 2000
     Route: 048
     Dates: start: 2006

REACTIONS (5)
  - Klebsiella sepsis [Not Recovered/Not Resolved]
  - Urosepsis [Unknown]
  - Urinary tract infection [Recovered/Resolved]
  - Pyelonephritis [Not Recovered/Not Resolved]
  - Pseudomonal sepsis [Not Recovered/Not Resolved]

NARRATIVE: CASE EVENT DATE: 20160814
